FAERS Safety Report 9731980 (Version 1)
Quarter: 2013Q4

REPORT INFORMATION
  Report Type: Spontaneous
  Country: US (occurrence: US)
  Receive Date: 20131205
  Receipt Date: 20131205
  Transmission Date: 20140711
  Serious: Yes (Other)
  Sender: FDA-Public Use
  Company Number: US-MYLANLABS-2013S1027038

PATIENT
  Age: 14 Year
  Sex: Male

DRUGS (2)
  1. EPIPEN [Suspect]
     Indication: FOOD ALLERGY
     Route: 030
  2. EPIPEN [Suspect]
     Indication: FOOD ALLERGY
     Route: 030

REACTIONS (2)
  - Device failure [Recovered/Resolved]
  - Expired device used [Recovered/Resolved]
